FAERS Safety Report 15758597 (Version 4)
Quarter: 2024Q2

REPORT INFORMATION
  Report Type: Spontaneous
  Country: FR (occurrence: FR)
  Receive Date: 20181225
  Receipt Date: 20240501
  Transmission Date: 20240716
  Serious: Yes (Hospitalization, Other)
  Sender: FDA-Public Use
  Company Number: PHHY2017FR116972

PATIENT
  Age: 6 Year
  Sex: Female

DRUGS (14)
  1. BASILIXIMAB [Suspect]
     Active Substance: BASILIXIMAB
     Indication: Immunosuppressant drug therapy
     Dosage: 10 MG; ON DAYS 1 AND 4 AFTER FIRST TRANSPLANTATION
     Route: 065
  2. BASILIXIMAB [Suspect]
     Active Substance: BASILIXIMAB
     Indication: Liver transplant
     Dosage: ON DAYS 1 AND 4 AFTER FIRST TRANSPLANTATION
     Route: 065
  3. BASILIXIMAB [Suspect]
     Active Substance: BASILIXIMAB
     Indication: Immunosuppressant drug therapy
  4. TACROLIMUS [Suspect]
     Active Substance: TACROLIMUS
     Indication: Immunosuppressant drug therapy
     Dosage: 0.2 MG, BID
     Route: 065
  5. TACROLIMUS [Suspect]
     Active Substance: TACROLIMUS
     Indication: Liver transplant
     Dosage: DOSE WAS REDUCED (2-4 ?G/L)
     Route: 065
  6. MYCOPHENOLATE MOFETIL [Suspect]
     Active Substance: MYCOPHENOLATE MOFETIL
     Indication: Immunosuppressant drug therapy
     Dosage: UNK
     Route: 065
  7. MYCOPHENOLATE MOFETIL [Suspect]
     Active Substance: MYCOPHENOLATE MOFETIL
     Indication: Liver transplant
  8. METHYLPREDNISOLONE [Suspect]
     Active Substance: METHYLPREDNISOLONE
     Indication: Transplant rejection
     Dosage: TAPERING OF THE ORAL CORTICOSTEROID
     Route: 048
  9. METHYLPREDNISOLONE [Suspect]
     Active Substance: METHYLPREDNISOLONE
     Dosage: 10 MG/KG,QD10 MG/KG; ONE CORTICOSTEROID PULSE ON DAY 9 OF 2ND TRANSPLANTATION, ON DAY 13, 3 CORTICOS
     Route: 065
  10. METHYLPREDNISOLONE [Suspect]
     Active Substance: METHYLPREDNISOLONE
     Dosage: 10 MG/KG,QD
     Route: 065
  11. METHYLPREDNISOLONE [Suspect]
     Active Substance: METHYLPREDNISOLONE
     Dosage: 10 MG/KG,QD
     Route: 065
  12. METHYLPREDNISOLONE [Suspect]
     Active Substance: METHYLPREDNISOLONE
     Dosage: 30 MG/KG;QD (3 CORTICOSTEROID PULSES)
     Route: 048
  13. CASPOFUNGIN [Concomitant]
     Active Substance: CASPOFUNGIN
     Indication: Antifungal treatment
     Dosage: 60 MG/M2 (50 MG)
     Route: 065
  14. CASPOFUNGIN [Concomitant]
     Active Substance: CASPOFUNGIN
     Dosage: 30 MG/M2 (25 MG)
     Route: 065

REACTIONS (6)
  - Coccidioidomycosis [Recovered/Resolved]
  - Pulmonary mass [Recovered/Resolved]
  - Lung infiltration [Recovered/Resolved]
  - Liver transplant rejection [Recovered/Resolved]
  - Product administered to patient of inappropriate age [Unknown]
  - Product use in unapproved indication [Unknown]
